FAERS Safety Report 12989719 (Version 1)
Quarter: 2016Q4

REPORT INFORMATION
  Report Type: Spontaneous
  Country: US (occurrence: US)
  Receive Date: 20161201
  Receipt Date: 20161201
  Transmission Date: 20170207
  Serious: Yes (Other)
  Sender: FDA-Public Use
  Company Number: US-ZYDUS-012787

PATIENT
  Age: 51 Year
  Sex: Male

DRUGS (2)
  1. LOSARTAN. [Suspect]
     Active Substance: LOSARTAN
     Indication: ESSENTIAL HYPERTENSION
     Route: 065
  2. PANTOPRAZOLE [Concomitant]
     Active Substance: PANTOPRAZOLE SODIUM
     Indication: GASTROOESOPHAGEAL REFLUX DISEASE
     Route: 065

REACTIONS (6)
  - Skin swelling [Recovering/Resolving]
  - Gastrointestinal wall thickening [Unknown]
  - Abdominal pain [Recovering/Resolving]
  - Scrotal swelling [Unknown]
  - Diarrhoea [Unknown]
  - Intestinal angioedema [Unknown]
